FAERS Safety Report 13598149 (Version 1)
Quarter: 2017Q2

REPORT INFORMATION
  Report Type: Spontaneous
  Country: ZA (occurrence: ZA)
  Receive Date: 20170531
  Receipt Date: 20170531
  Transmission Date: 20170830
  Serious: Yes (Hospitalization, Other)
  Sender: FDA-Public Use
  Company Number: ZA-PFIZER INC-2017234951

PATIENT
  Age: 70 Year
  Sex: Female

DRUGS (3)
  1. FOLIC ACID. [Concomitant]
     Active Substance: FOLIC ACID
     Dosage: UNK
  2. METHOTREXATE. [Suspect]
     Active Substance: METHOTREXATE
     Dosage: UNK
  3. CELEBREX [Suspect]
     Active Substance: CELECOXIB
     Dosage: UNK

REACTIONS (7)
  - Pneumonia [Unknown]
  - Cardiac disorder [Unknown]
  - Product use issue [Unknown]
  - Peripheral swelling [Unknown]
  - Pain [Unknown]
  - Mobility decreased [Unknown]
  - Heart valve incompetence [Unknown]
